FAERS Safety Report 5803826-2 (Version None)
Quarter: 2008Q3

REPORT INFORMATION
  Report Type: 
  Country: None (occurrence: None)
  Receive Date: 20080708
  Receipt Date: 20080626
  Transmission Date: 20090109
  Serious: No
  Sender: FDA-Public Use
  Company Number: US-BOEHRINGER INGELHEIM GMBH, GERMANY-2008-BP-09889BP

PATIENT
  Sex: Female

DRUGS (1)
  1. FLOMAX [Suspect]
     Indication: BLADDER DISORDER
     Route: 048
     Dates: start: 20080623

REACTIONS (3)
  - ABDOMINAL PAIN [None]
  - DIARRHOEA [None]
  - NAUSEA [None]
